FAERS Safety Report 22906154 (Version 2)
Quarter: 2023Q4

REPORT INFORMATION
  Report Type: Report from Study
  Country: US (occurrence: US)
  Receive Date: 20230905
  Receipt Date: 20231004
  Transmission Date: 20240110
  Serious: Yes (Other)
  Sender: FDA-Public Use
  Company Number: US-BAYER-2023A120586

PATIENT
  Age: 40 Year

DRUGS (2)
  1. AFRIN [Suspect]
     Active Substance: OXYMETAZOLINE
     Indication: Hypersensitivity
     Dosage: 7-8 YEAR
     Route: 045
  2. AFRIN [Suspect]
     Active Substance: OXYMETAZOLINE
     Indication: Nasopharyngitis

REACTIONS (2)
  - Drug dependence [Unknown]
  - Incorrect product administration duration [Unknown]
